FAERS Safety Report 11807352 (Version 2)
Quarter: 2015Q4

REPORT INFORMATION
  Report Type: Spontaneous
  Country: US (occurrence: US)
  Receive Date: 20151207
  Receipt Date: 20151221
  Transmission Date: 20160305
  Serious: Yes (Death)
  Sender: FDA-Public Use
  Company Number: US-009507513-1512USA002596

PATIENT
  Age: 69 Year
  Sex: Female

DRUGS (3)
  1. EMEND [Suspect]
     Active Substance: APREPITANT
     Dosage: 1 CAPSULA FOR 3 DAYS
     Route: 048
  2. CISPLATIN. [Concomitant]
     Active Substance: CISPLATIN
     Indication: CHEMOTHERAPY
     Dosage: UNK
  3. TAXOL [Concomitant]
     Active Substance: PACLITAXEL
     Indication: CHEMOTHERAPY
     Dosage: UNK

REACTIONS (1)
  - Death [Fatal]

NARRATIVE: CASE EVENT DATE: 20150912
